FAERS Safety Report 9170240 (Version 3)
Quarter: 2013Q4

REPORT INFORMATION
  Report Type: Spontaneous
  Country: AU (occurrence: None)
  Receive Date: 20130308
  Receipt Date: 20131017
  Transmission Date: 20140711
  Serious: Yes (Death, Hospitalization, Other)
  Sender: FDA-Public Use
  Company Number: 20130079

PATIENT
  Age: 60 Year
  Sex: Male

DRUGS (3)
  1. VENOFER [Suspect]
     Indication: PRODUCT USED FOR UNKNOWN INDICATION
     Dosage: 1500 MG IN 500 ML NS/4HRS
     Route: 041
     Dates: start: 20120821, end: 20120821
  2. SUBSYS [Suspect]
     Indication: CANCER PAIN
     Dosage: SL
  3. METHADONE [Concomitant]

REACTIONS (9)
  - Abdominal pain [None]
  - Nausea [None]
  - Urticaria [None]
  - Cardiovascular disorder [None]
  - Infusion related reaction [None]
  - Off label use [None]
  - Incorrect dose administered [None]
  - Haemodynamic instability [None]
  - Urticaria [None]
